FAERS Safety Report 6209131-7 (Version None)
Quarter: 2009Q2

REPORT INFORMATION
  Report Type: 
  Country: None (occurrence: None)
  Receive Date: 20090522
  Receipt Date: 20090129
  Transmission Date: 20091009
  Serious: No
  Sender: FDA-Public Use
  Company Number: 8040660

PATIENT
  Age: 55 Year
  Sex: Male
  Weight: 77.11 kg

DRUGS (6)
  1. CIMZIA [Suspect]
     Indication: CROHN'S DISEASE
     Dosage: 400 MG SC
     Route: 058
     Dates: start: 20081217
  2. LIALDA [Concomitant]
  3. ENTOCORT EC [Concomitant]
  4. VITAMIN [Concomitant]
  5. ASACOL [Concomitant]
  6. ROWASA [Concomitant]

REACTIONS (2)
  - DIARRHOEA HAEMORRHAGIC [None]
  - INFLUENZA LIKE ILLNESS [None]
